FAERS Safety Report 4677067-9 (Version None)
Quarter: 2005Q2

REPORT INFORMATION
  Report Type: 
  Country: None (occurrence: None)
  Receive Date: 20050525
  Receipt Date: 20050307
  Transmission Date: 20051028
  Serious: No
  Sender: FDA-Public Use
  Company Number: SU-2005-003285

PATIENT
  Sex: Male

DRUGS (2)
  1. BENICAR [Suspect]
     Indication: HYPERTENSION
     Dosage: MG PO
     Route: 048
     Dates: start: 20041101, end: 20041222
  2. AVAPRO [Concomitant]

REACTIONS (2)
  - HYPERSENSITIVITY [None]
  - URTICARIA [None]
